FAERS Safety Report 7023486-5 (Version None)
Quarter: 2010Q3

REPORT INFORMATION
  Report Type: 
  Country: None (occurrence: None)
  Receive Date: 20100929
  Receipt Date: 20100923
  Transmission Date: 20110219
  Serious: Yes (Life-Threatening)
  Sender: FDA-Public Use
  Company Number: 2010US003924

PATIENT
  Age: 29 Year
  Sex: Female

DRUGS (2)
  1. PROGRAF [Suspect]
     Indication: LIVER TRANSPLANT
     Dosage: 2 MG BID ORAL
     Route: 048
  2. PREDNISONE TAB [Concomitant]

REACTIONS (4)
  - DRUG EXPOSURE DURING PREGNANCY [None]
  - HELLP SYNDROME [None]
  - PREGNANCY [None]
  - PREMATURE LABOUR [None]
